FAERS Safety Report 8612124-3 (Version None)
Quarter: 2012Q3

REPORT INFORMATION
  Report Type: 
  Country: None (occurrence: None)
  Receive Date: 20120822
  Receipt Date: 20120821
  Transmission Date: 20120928
  Serious: Yes (Other)
  Sender: FDA-Public Use
  Company Number: US-PFIZER INC-2012205080

PATIENT
  Sex: Male

DRUGS (1)
  1. CHANTIX [Suspect]
     Dosage: UNK

REACTIONS (4)
  - SUICIDAL IDEATION [None]
  - SPINAL COLUMN STENOSIS [None]
  - NEURALGIA [None]
  - INTERVERTEBRAL DISC DISORDER [None]
